FAERS Safety Report 5281134-9 (Version None)
Quarter: 2007Q1

REPORT INFORMATION
  Report Type: 
  Country: None (occurrence: None)
  Receive Date: 20070323
  Receipt Date: 20070314
  Transmission Date: 20070707
  Serious: Yes (Life-Threatening)
  Sender: FDA-Public Use
  Company Number: 2006SP007379

PATIENT
  Age: 72 Year
  Sex: Female
  Weight: 60 kg

DRUGS (7)
  1. TEMODAL [Suspect]
     Indication: OLIGODENDROGLIOMA
     Dosage: 75 MG/M2;QD;PO
     Route: 048
     Dates: start: 20061020, end: 20061114
  2. RADIOTHERAPY (CON.) [Concomitant]
  3. BAKTAR (CON.) [Concomitant]
  4. PREDONINE (CON.) [Concomitant]
  5. ADALAT (PREV.) [Concomitant]
  6. NASEA OD (CON.) [Concomitant]
  7. PRIMPERAN (PREV.) [Concomitant]

REACTIONS (8)
  - BLOOD PRESSURE DECREASED [None]
  - BRADYCARDIA [None]
  - COMPUTERISED TOMOGRAM ABNORMAL [None]
  - HYPOPERFUSION [None]
  - LOSS OF CONSCIOUSNESS [None]
  - PO2 DECREASED [None]
  - PULMONARY INFARCTION [None]
  - RIGHT VENTRICULAR FAILURE [None]
